FAERS Safety Report 6692848-8 (Version None)
Quarter: 2010Q2

REPORT INFORMATION
  Report Type: 
  Country: None (occurrence: None)
  Receive Date: 20100422
  Receipt Date: 20100416
  Transmission Date: 20101027
  Serious: Yes (Other)
  Sender: FDA-Public Use
  Company Number: US-ASTRAZENECA-2010SE11148

PATIENT
  Age: 40 Year
  Sex: Male
  Weight: 136.1 kg

DRUGS (9)
  1. SEROQUEL [Suspect]
     Indication: SCHIZOPHRENIA
     Route: 048
  2. SEROQUEL [Suspect]
     Route: 048
     Dates: end: 20100318
  3. SEROQUEL [Suspect]
     Route: 048
     Dates: start: 20100301
  4. SEROQUEL [Suspect]
     Route: 048
     Dates: end: 20100412
  5. SEROQUEL [Suspect]
     Route: 048
     Dates: start: 20100401
  6. DEPAKOTE [Suspect]
     Dates: start: 20100201
  7. FLUOXETINE [Concomitant]
  8. BUPROPION HCL [Concomitant]
     Dosage: EVERY DAY
  9. ALPRAZOLAM [Concomitant]

REACTIONS (6)
  - FATIGUE [None]
  - INTENTIONAL SELF-INJURY [None]
  - PARANOIA [None]
  - SOCIAL AVOIDANT BEHAVIOUR [None]
  - SOMNOLENCE [None]
  - WEIGHT INCREASED [None]
